FAERS Safety Report 9022619 (Version 2)
Quarter: 2013Q1

REPORT INFORMATION
  Report Type: Spontaneous
  Country: US (occurrence: US)
  Receive Date: 20130118
  Receipt Date: 20130306
  Transmission Date: 20140127
  Serious: Yes (Hospitalization, Other)
  Sender: FDA-Public Use
  Company Number: US-009507513-2012SP005871

PATIENT
  Sex: Female
  Weight: 91.61 kg

DRUGS (3)
  1. NUVARING [Suspect]
     Indication: CONTRACEPTION
     Route: 067
     Dates: start: 200807, end: 201012
  2. NUVARING [Suspect]
     Dosage: UNK
     Route: 067
     Dates: start: 2005, end: 2007
  3. [THERAPY UNSPECIFIED] [Concomitant]
     Indication: OVERWEIGHT
     Route: 048

REACTIONS (3)
  - Pulmonary embolism [Unknown]
  - Mammoplasty [Unknown]
  - Microcytic anaemia [Unknown]
